FAERS Safety Report 7407907-1 (Version None)
Quarter: 2011Q2

REPORT INFORMATION
  Report Type: 
  Country: None (occurrence: None)
  Receive Date: 20110412
  Receipt Date: 20110407
  Transmission Date: 20111010
  Serious: No
  Sender: FDA-Public Use
  Company Number: US-PFIZER INC-2011077501

PATIENT
  Sex: Female
  Weight: 93 kg

DRUGS (2)
  1. LIPITOR [Suspect]
     Indication: BLOOD CHOLESTEROL INCREASED
     Dosage: 20 MG, UNK
     Route: 048
     Dates: start: 20110101, end: 20110405
  2. LIPITOR [Suspect]
     Indication: PROPHYLAXIS
     Dosage: 10 MG DAILY
     Route: 048
     Dates: start: 20030101, end: 20110101

REACTIONS (6)
  - ARTHRALGIA [None]
  - MYALGIA [None]
  - PARAESTHESIA [None]
  - MUSCULOSKELETAL PAIN [None]
  - PAIN IN EXTREMITY [None]
  - TENDON PAIN [None]
